FAERS Safety Report 15453188 (Version 1)
Quarter: 2018Q4

REPORT INFORMATION
  Report Type: Spontaneous
  Country: US (occurrence: US)
  Receive Date: 20181001
  Receipt Date: 20181001
  Transmission Date: 20190204
  Serious: No
  Sender: FDA-Public Use
  Company Number: US-ALLERGAN-1763004US

PATIENT
  Sex: Male

DRUGS (1)
  1. RECTIV [Suspect]
     Active Substance: NITROGLYCERIN
     Indication: PROCTALGIA
     Dosage: UNK, UNKNOWN
     Route: 065
     Dates: start: 20171006

REACTIONS (1)
  - Drug ineffective [Unknown]
